FAERS Safety Report 4705282-4 (Version None)
Quarter: 2005Q3

REPORT INFORMATION
  Report Type: 
  Country: None (occurrence: None)
  Receive Date: 20050701
  Receipt Date: 20050627
  Transmission Date: 20060218
  Serious: Yes (Other)
  Sender: FDA-Public Use
  Company Number: GB-BRISTOL-MYERS SQUIBB COMPANY-13016506

PATIENT
  Age: 72 Year
  Sex: Male

DRUGS (4)
  1. ERBITUX [Suspect]
     Indication: RECTAL CANCER METASTATIC
     Route: 042
     Dates: start: 20050425, end: 20050425
  2. IRINOTECAN [Concomitant]
     Indication: RECTAL CANCER METASTATIC
     Dosage: ADMINISTERED IN CONJUNCTION WITH CETUXIMAB.
  3. ATIVAN [Concomitant]
     Indication: NAUSEA
  4. ATENOLOL [Concomitant]
     Dosage: PATIENT TAKING ^ON HIS OWN.^

REACTIONS (2)
  - BLISTER [None]
  - DERMATITIS ACNEIFORM [None]
